FAERS Safety Report 8265590 (Version 4)
Quarter: 2015Q1

REPORT INFORMATION
  Report Type: Spontaneous
  Country: US (occurrence: US)
  Receive Date: 20111128
  Receipt Date: 20150331
  Transmission Date: 20150721
  Serious: Yes (Other)
  Sender: FDA-Public Use
  Company Number: US-ROCHE-786630

PATIENT
  Age: 23 Year
  Sex: Female
  Weight: 59.02 kg

DRUGS (2)
  1. ACCUTANE [Suspect]
     Active Substance: ISOTRETINOIN
     Route: 065
  2. ACCUTANE [Suspect]
     Active Substance: ISOTRETINOIN
     Indication: ACNE
     Route: 048

REACTIONS (7)
  - Anal haemorrhage [Unknown]
  - Dry skin [Unknown]
  - Lip dry [Unknown]
  - Colitis ulcerative [Unknown]
  - Emotional distress [Unknown]
  - Colitis [Unknown]
  - Insomnia [Unknown]

NARRATIVE: CASE EVENT DATE: 20080806
